FAERS Safety Report 13544010 (Version 2)
Quarter: 2017Q2

REPORT INFORMATION
  Report Type: Spontaneous
  Country: BR (occurrence: BR)
  Receive Date: 20170515
  Receipt Date: 20170515
  Transmission Date: 20170830
  Serious: Yes (Other)
  Sender: FDA-Public Use
  Company Number: BR-009507513-1705BRA006802

PATIENT
  Age: 21 Year
  Sex: Female
  Weight: 62 kg

DRUGS (3)
  1. MERCILON [Suspect]
     Active Substance: DESOGESTREL\ETHINYL ESTRADIOL
     Indication: CONTRACEPTION
     Dosage: ONE TABLET DAILY WITH PAUSE OF 7 DAYS
     Route: 048
     Dates: start: 1991, end: 1999
  2. MERCILON [Suspect]
     Active Substance: DESOGESTREL\ETHINYL ESTRADIOL
     Dosage: UNK
     Route: 048
  3. ELANI [Concomitant]
     Indication: CONTRACEPTION
     Dosage: UNK

REACTIONS (3)
  - Caesarean section [Unknown]
  - Premature separation of placenta [Unknown]
  - Blood pressure abnormal [Unknown]

NARRATIVE: CASE EVENT DATE: 20000210
